FAERS Safety Report 14370680 (Version 1)
Quarter: 2018Q1

REPORT INFORMATION
  Report Type: Spontaneous
  Country: US (occurrence: US)
  Receive Date: 20180109
  Receipt Date: 20180109
  Transmission Date: 20180509
  Serious: No
  Sender: FDA-Public Use
  Company Number: None

PATIENT
  Age: 2 Year
  Sex: Male

DRUGS (1)
  1. SABRIL [Suspect]
     Active Substance: VIGABATRIN
     Indication: EPILEPSY
     Dosage: FREQUENCY - EVERY MORNING
     Route: 048
     Dates: start: 20160615

REACTIONS (2)
  - Nasopharyngitis [None]
  - Pyrexia [None]

NARRATIVE: CASE EVENT DATE: 20171226
